FAERS Safety Report 17845849 (Version 2)
Quarter: 2020Q2

REPORT INFORMATION
  Report Type: Report from Study
  Country: None (occurrence: US)
  Receive Date: 20200601
  Receipt Date: 20200626
  Transmission Date: 20200714
  Serious: Yes (Other)
  Sender: FDA-Public Use
  Company Number: US-ABBVIE-20K-163-3421606-00

PATIENT
  Age: 53 Year
  Sex: Female

DRUGS (4)
  1. HUMIRA [Suspect]
     Active Substance: ADALIMUMAB
     Indication: RHEUMATOID ARTHRITIS
     Route: 058
     Dates: start: 201902
  2. TYLENOL [Concomitant]
     Active Substance: ACETAMINOPHEN
     Indication: PRODUCT USED FOR UNKNOWN INDICATION
  3. HUMIRA [Suspect]
     Active Substance: ADALIMUMAB
     Indication: ANKYLOSING SPONDYLITIS
     Route: 058
  4. CELEBREX [Concomitant]
     Active Substance: CELECOXIB
     Indication: PRODUCT USED FOR UNKNOWN INDICATION

REACTIONS (23)
  - Spinal fusion surgery [Unknown]
  - Inflammation [Recovered/Resolved]
  - Pain [Unknown]
  - Pelvic pain [Unknown]
  - Cardiac aneurysm [Unknown]
  - Spinal pain [Unknown]
  - Neck pain [Unknown]
  - Injury [Recovered/Resolved]
  - Loss of personal independence in daily activities [Unknown]
  - Peripheral swelling [Unknown]
  - Peripheral swelling [Recovered/Resolved]
  - Weight increased [Unknown]
  - Insomnia [Unknown]
  - Inflammation [Unknown]
  - Muscle atrophy [Unknown]
  - Aneurysm [Unknown]
  - Swelling [Unknown]
  - Swelling [Unknown]
  - Pain in extremity [Unknown]
  - Back pain [Unknown]
  - Blood pressure increased [Unknown]
  - Musculoskeletal stiffness [Recovered/Resolved]
  - Heart valve incompetence [Unknown]

NARRATIVE: CASE EVENT DATE: 2019
